FAERS Safety Report 13554423 (Version 1)
Quarter: 2017Q2

REPORT INFORMATION
  Report Type: Spontaneous
  Country: CH (occurrence: CH)
  Receive Date: 20170517
  Receipt Date: 20170517
  Transmission Date: 20170830
  Serious: Yes (Other)
  Sender: FDA-Public Use
  Company Number: CH-ASTRAZENECA-2017SE51761

PATIENT
  Age: 62 Year
  Sex: Female

DRUGS (4)
  1. LYNPARZA [Suspect]
     Active Substance: OLAPARIB
     Indication: ENDOMETRIAL CANCER
     Dosage: 4 CAPSULES IN THE MORNING AND 4 CAPSULES IN THE EVENING
     Route: 048
     Dates: start: 20160722, end: 20160902
  2. LYNPARZA [Suspect]
     Active Substance: OLAPARIB
     Indication: ENDOMETRIAL CANCER
     Dosage: 6 CAPSULES IN THE MORNING AND 6 CAPSULES IN THE EVENING
     Route: 048
     Dates: start: 20160716, end: 20160722
  3. LYNPARZA [Suspect]
     Active Substance: OLAPARIB
     Indication: ENDOMETRIAL CANCER
     Dosage: 8 CAPSULES IN THE MORNING AND 8 CAPSULES IN THE EVENING
     Route: 048
     Dates: start: 20160520, end: 20160708
  4. LYNPARZA [Suspect]
     Active Substance: OLAPARIB
     Indication: ENDOMETRIAL CANCER
     Dosage: 3 CAPSULES IN THE MORNING AND 3 CAPSULES IN THE EVENING
     Route: 048
     Dates: start: 20160905, end: 20160912

REACTIONS (6)
  - Respiratory tract infection [Unknown]
  - Pyrexia [Unknown]
  - Malaise [Unknown]
  - Anaemia [Unknown]
  - Chills [Unknown]
  - Febrile infection [Unknown]

NARRATIVE: CASE EVENT DATE: 20160708
